FAERS Safety Report 14251249 (Version 4)
Quarter: 2018Q2

REPORT INFORMATION
  Report Type: Spontaneous
  Country: US (occurrence: US)
  Receive Date: 20171205
  Receipt Date: 20180606
  Transmission Date: 20180711
  Serious: Yes (Death, Hospitalization, Other)
  Sender: FDA-Public Use
  Company Number: US-009507513-1712USA001553

PATIENT
  Sex: Female
  Weight: 99.77 kg

DRUGS (1)
  1. NUVARING [Suspect]
     Active Substance: ETHINYL ESTRADIOL\ETONOGESTREL
     Indication: CONTRACEPTION
     Dosage: 0.12MG-0.015MG/24HR,1RING INSERTED VAGINALLY X 3 WEEKS, THEN 1 WEEK OUT
     Route: 067
     Dates: start: 201511, end: 201512

REACTIONS (24)
  - Panic disorder [Recovered/Resolved]
  - Arrhythmia [Unknown]
  - Tachycardia [Unknown]
  - Pulmonary embolism [Fatal]
  - Muscle strain [Recovering/Resolving]
  - Adverse event [Unknown]
  - Bradycardia [Unknown]
  - Temperature regulation disorder [Unknown]
  - Nasopharyngitis [Unknown]
  - Oxygen saturation decreased [Unknown]
  - Arthralgia [Recovering/Resolving]
  - Oxygen saturation decreased [Unknown]
  - Atrial fibrillation [Unknown]
  - Pain in extremity [Unknown]
  - Bradycardia [Unknown]
  - Upper respiratory tract infection [Unknown]
  - Thrombosis [Unknown]
  - Heart rate irregular [Unknown]
  - Headache [Unknown]
  - Jaundice [Unknown]
  - Oedema peripheral [Unknown]
  - Productive cough [Unknown]
  - Osteoarthritis [Recovered/Resolved]
  - Bradycardia [Unknown]

NARRATIVE: CASE EVENT DATE: 201511
